FAERS Safety Report 10041590 (Version 1)
Quarter: 2014Q1

REPORT INFORMATION
  Report Type: Spontaneous
  Country: US (occurrence: US)
  Receive Date: 20140327
  Receipt Date: 20140327
  Transmission Date: 20141002
  Serious: No
  Sender: FDA-Public Use
  Company Number: US-BAYER-2014-046305

PATIENT
  Sex: Male

DRUGS (3)
  1. ALEVE CAPLET [Suspect]
     Dosage: UNK
  2. METFORMIN [Concomitant]
  3. ASPIRIN [Concomitant]

REACTIONS (1)
  - Dizziness [Recovered/Resolved]
